FAERS Safety Report 8553919-4 (Version None)
Quarter: 2012Q3

REPORT INFORMATION
  Report Type: 
  Country: None (occurrence: None)
  Receive Date: 20120731
  Receipt Date: 20120724
  Transmission Date: 20120928
  Serious: Yes (Life-Threatening, Other)
  Sender: FDA-Public Use
  Company Number: CA-JNJFOC-20120605573

PATIENT
  Age: 64 Year
  Sex: Female
  Weight: 65.76 kg

DRUGS (8)
  1. CONJUGATED ESTROGENS [Concomitant]
     Dates: start: 20111204
  2. PREDNISONE [Concomitant]
     Dates: start: 20111205
  3. HYDROCORTISONE [Concomitant]
     Dosage: PRE-OP AND POST OP
     Route: 042
     Dates: start: 20111201
  4. CREON [Concomitant]
     Dates: start: 20111106
  5. XARELTO [Suspect]
     Indication: THROMBOSIS PROPHYLAXIS
     Route: 048
     Dates: start: 20111203, end: 20111205
  6. XARELTO [Suspect]
     Indication: ANTICOAGULANT THERAPY
     Route: 048
     Dates: start: 20111203, end: 20111205
  7. ACETAMINOPHEN [Concomitant]
  8. ATORVASTATIN [Concomitant]
     Dates: start: 20111126

REACTIONS (3)
  - RECTAL HAEMORRHAGE [None]
  - RENAL FAILURE ACUTE [None]
  - HYPOTENSION [None]
